FAERS Safety Report 6722516-5 (Version None)
Quarter: 2010Q2

REPORT INFORMATION
  Report Type: 
  Country: None (occurrence: None)
  Receive Date: 20100512
  Receipt Date: 20100430
  Transmission Date: 20101027
  Serious: Yes (Other)
  Sender: FDA-Public Use
  Company Number: GB-ELI_LILLY_AND_COMPANY-GB201003007272

PATIENT
  Age: 29 Year
  Sex: Female

DRUGS (6)
  1. OLANZAPINE [Suspect]
     Dosage: 10 MG, EACH EVENING
     Route: 048
     Dates: start: 20100301, end: 20100301
  2. OLANZAPINE [Suspect]
     Dosage: UNK, UNKNOWN
     Route: 048
     Dates: start: 20100301
  3. ZAPONEX [Concomitant]
     Route: 048
     Dates: start: 20090722, end: 20090801
  4. ZAPONEX [Concomitant]
     Route: 048
     Dates: start: 20090818, end: 20100301
  5. SODIUM VALPROATE [Concomitant]
     Dosage: 20 MG, DAILY (1/D)
     Route: 048
  6. LEVOTHYROXINE SODIUM [Concomitant]
     Dosage: 100 UG, UNK
     Route: 048

REACTIONS (4)
  - LEUKOPENIA [None]
  - NEUTROPENIA [None]
  - NEUTROPHIL COUNT DECREASED [None]
  - WHITE BLOOD CELL COUNT DECREASED [None]
